FAERS Safety Report 9271971 (Version 1)
Quarter: 2013Q2

REPORT INFORMATION
  Report Type: Spontaneous
  Country: US (occurrence: US)
  Receive Date: 20130506
  Receipt Date: 20130506
  Transmission Date: 20140414
  Serious: Yes (Other)
  Sender: FDA-Public Use
  Company Number: US-ELI_LILLY_AND_COMPANY-US201304008579

PATIENT
  Sex: Female

DRUGS (1)
  1. CYMBALTA [Suspect]
     Dosage: 30 MG, UNKNOWN

REACTIONS (7)
  - Dyspnoea [Unknown]
  - Throat tightness [Unknown]
  - Palpitations [Unknown]
  - Rash [Unknown]
  - Dizziness [Unknown]
  - Labile blood pressure [Unknown]
  - Fatigue [Unknown]
